FAERS Safety Report 15180256 (Version 1)
Quarter: 2018Q3

REPORT INFORMATION
  Report Type: Spontaneous
  Country: US (occurrence: US)
  Receive Date: 20180623
  Receipt Date: 20180623
  Transmission Date: 20181010
  Serious: No
  Sender: FDA-Public Use
  Company Number: None

PATIENT
  Age: 32 Year
  Sex: Female

DRUGS (1)
  1. CIPRODEX [Suspect]
     Active Substance: CIPROFLOXACIN HYDROCHLORIDE\DEXAMETHASONE
     Indication: OTITIS MEDIA
     Dates: start: 20180621, end: 20180623

REACTIONS (7)
  - Hypoaesthesia [None]
  - Drug hypersensitivity [None]
  - Swollen tongue [None]
  - Neck pain [None]
  - Facial paralysis [None]
  - Lip swelling [None]
  - Dysgeusia [None]

NARRATIVE: CASE EVENT DATE: 20180623
